FAERS Safety Report 5036803-2 (Version None)
Quarter: 2006Q2

REPORT INFORMATION
  Report Type: 
  Country: None (occurrence: None)
  Receive Date: 20060601
  Receipt Date: 20060309
  Transmission Date: 20061013
  Serious: Yes (Other)
  Sender: FDA-Public Use
  Company Number: US200603003397

PATIENT
  Age: 46 Year
  Sex: Female

DRUGS (1)
  1. CYMBALTA [Suspect]
     Dosage: 60
     Dates: start: 20060303, end: 20060309

REACTIONS (5)
  - ANXIETY [None]
  - INCOHERENT [None]
  - INSOMNIA [None]
  - SCREAMING [None]
  - SYNCOPE [None]
